FAERS Safety Report 16046074 (Version 1)
Quarter: 2019Q1

REPORT INFORMATION
  Report Type: Spontaneous
  Country: JP (occurrence: JP)
  Receive Date: 20190307
  Receipt Date: 20190307
  Transmission Date: 20190418
  Serious: Yes (Other)
  Sender: FDA-Public Use
  Company Number: JP-TEVA-2019-JP-001250J

PATIENT
  Age: 41 Year
  Sex: Male

DRUGS (1)
  1. EURODIN 1MG. TABLETS [Suspect]
     Active Substance: ESTAZOLAM
     Indication: PRODUCT USED FOR UNKNOWN INDICATION
     Dosage: 1 MILLIGRAM DAILY;
     Route: 048

REACTIONS (3)
  - Altered state of consciousness [Unknown]
  - Blood creatinine increased [Unknown]
  - Drug screen positive [Unknown]
